FAERS Safety Report 8556744-3 (Version None)
Quarter: 2012Q3

REPORT INFORMATION
  Report Type: 
  Country: None (occurrence: None)
  Receive Date: 20120726
  Receipt Date: 20120726
  Transmission Date: 20120928
  Serious: Yes (Hospitalization, Other)
  Sender: FDA-Public Use
  Company Number: None

PATIENT
  Sex: Male

DRUGS (2)
  1. PRADAXA [Suspect]
     Indication: ATRIAL FIBRILLATION
     Dosage: 150 MG, TWICE A DAY, PO
     Route: 048
     Dates: start: 20120719, end: 20120720
  2. BLOOD PRESSURE MEDICATION [Concomitant]

REACTIONS (1)
  - BLOOD URINE PRESENT [None]
